FAERS Safety Report 13996000 (Version 1)
Quarter: 2017Q3

REPORT INFORMATION
  Report Type: Spontaneous
  Country: US (occurrence: US)
  Receive Date: 20170921
  Receipt Date: 20170921
  Transmission Date: 20171128
  Serious: No
  Sender: FDA-Public Use
  Company Number: US-AMARIN PHARMA, INC.-2016AMR000174

PATIENT
  Sex: Male

DRUGS (2)
  1. STATIN [Concomitant]
     Active Substance: UNSPECIFIED INGREDIENT
     Indication: PRODUCT USED FOR UNKNOWN INDICATION
     Route: 065
  2. VASCEPA [Suspect]
     Active Substance: ICOSAPENT ETHYL
     Indication: TYPE V HYPERLIPIDAEMIA
     Route: 065
     Dates: start: 201510

REACTIONS (3)
  - Blood cholesterol increased [Not Recovered/Not Resolved]
  - Low density lipoprotein increased [Not Recovered/Not Resolved]
  - Off label use [Unknown]

NARRATIVE: CASE EVENT DATE: 201510
